FAERS Safety Report 11142108 (Version 1)
Quarter: 2015Q2

REPORT INFORMATION
  Report Type: Spontaneous
  Country: US (occurrence: None)
  Receive Date: 20150526
  Receipt Date: 20150526
  Transmission Date: 20150821
  Serious: Yes (Disabling)
  Sender: FDA-Public Use
  Company Number: None

PATIENT
  Age: 57 Year
  Sex: Female
  Weight: 61.69 kg

DRUGS (13)
  1. RITUXAN [Suspect]
     Active Substance: RITUXIMAB
     Indication: SJOGREN^S SYNDROME
     Dosage: 4 TIMES EVERY 6 MO INTO A VEIN
     Route: 042
     Dates: start: 20140319, end: 20141015
  2. MULTIVITAMIN [Concomitant]
     Active Substance: VITAMINS
  3. METHOTREXATE [Concomitant]
     Active Substance: METHOTREXATE
  4. GABAPENTIN. [Concomitant]
     Active Substance: GABAPENTIN
  5. CURCUMIN [Concomitant]
     Active Substance: CURCUMIN
  6. PROBIOTICS [Concomitant]
     Active Substance: PROBIOTICS NOS
  7. WELLBUTRIN [Concomitant]
     Active Substance: BUPROPION HYDROCHLORIDE
  8. PREDNISONE. [Concomitant]
     Active Substance: PREDNISONE
  9. RESTASIS [Concomitant]
     Active Substance: CYCLOSPORINE
  10. SYNTHROID [Concomitant]
     Active Substance: LEVOTHYROXINE SODIUM
  11. PILOCARPINE [Concomitant]
     Active Substance: PILOCARPINE
  12. FISH OIL [Concomitant]
     Active Substance: FISH OIL
  13. ACETAMINOPHEN. [Concomitant]
     Active Substance: ACETAMINOPHEN

REACTIONS (7)
  - Gait disturbance [None]
  - Balance disorder [None]
  - Neuralgia [None]
  - Dizziness [None]
  - Muscle spasms [None]
  - Peripheral coldness [None]
  - Bladder disorder [None]

NARRATIVE: CASE EVENT DATE: 20141014
